FAERS Safety Report 25530120 (Version 1)
Quarter: 2025Q3

REPORT INFORMATION
  Report Type: Spontaneous
  Country: EG (occurrence: EG)
  Receive Date: 20250708
  Receipt Date: 20250708
  Transmission Date: 20251021
  Serious: Yes (Hospitalization)
  Sender: ELI LILLY AND COMPANY
  Company Number: EG-ELI_LILLY_AND_COMPANY-EG202409001943

PATIENT
  Age: 70 Year
  Sex: Female

DRUGS (4)
  1. VERZENIO [Suspect]
     Active Substance: ABEMACICLIB
     Indication: Breast cancer metastatic
     Dosage: 200 MG, DAILY
     Route: 048
     Dates: start: 20240918
  2. VERZENIO [Suspect]
     Active Substance: ABEMACICLIB
     Dosage: 100 MG, BID
     Route: 048
     Dates: start: 20241003
  3. VERZENIO [Suspect]
     Active Substance: ABEMACICLIB
     Route: 048
  4. AROMASIN [Concomitant]
     Active Substance: EXEMESTANE
     Indication: Breast cancer metastatic
     Dosage: 25 MG, DAILY
     Route: 065

REACTIONS (5)
  - Respiratory disorder [Unknown]
  - Muscle disorder [Unknown]
  - Nervous system disorder [Unknown]
  - Diaphragmatic disorder [Unknown]
  - Intercepted product prescribing error [Unknown]
